FAERS Safety Report 23135836 (Version 1)
Quarter: 2023Q4

REPORT INFORMATION
  Report Type: Report from Study
  Country: GB (occurrence: GB)
  Receive Date: 20231101
  Receipt Date: 20231101
  Transmission Date: 20240110
  Serious: Yes (Hospitalization)
  Sender: FDA-Public Use
  Company Number: GB-SANDOZ-SDZ2023GB013118

PATIENT
  Sex: Female

DRUGS (1)
  1. OMNITROPE [Suspect]
     Active Substance: SOMATROPIN
     Indication: Hypopituitarism
     Dosage: 0.25 MG, QD
     Route: 058

REACTIONS (2)
  - Hospitalisation [Not Recovered/Not Resolved]
  - Pituitary-dependent Cushing^s syndrome [Unknown]
